FAERS Safety Report 24111088 (Version 2)
Quarter: 2024Q4

REPORT INFORMATION
  Report Type: Spontaneous
  Country: CZ (occurrence: CZ)
  Receive Date: 20240718
  Receipt Date: 20241105
  Transmission Date: 20250114
  Serious: Yes (Hospitalization)
  Sender: MYLAN
  Company Number: CZ-MYLANLABS-2024M1065412

PATIENT
  Age: 45 Year
  Sex: Male

DRUGS (31)
  1. CLOZAPINE [Suspect]
     Active Substance: CLOZAPINE
     Indication: Schizophrenia
     Dosage: 450 MILLIGRAM
     Route: 048
     Dates: start: 201403
  2. CLOZAPINE [Suspect]
     Active Substance: CLOZAPINE
     Dosage: 400 MILLIGRAM, QD (400 MG/DAY)
     Route: 048
  3. CLOZAPINE [Suspect]
     Active Substance: CLOZAPINE
     Dosage: 450 MILLIGRAM, QD (INCREASED SLIGHTLY, TO ONLY 450 MG/DAY)
     Route: 048
  4. CLOZAPINE [Suspect]
     Active Substance: CLOZAPINE
     Dosage: 100 MILLIGRAM, QD (REDUCED TO 100 MG GIVEN IN THE EVENING)
     Route: 048
  5. CLOZAPINE [Suspect]
     Active Substance: CLOZAPINE
     Dosage: 300 MILLIGRAM, QD (GRADUALLY INCREASED TO 300 MG/DAY)
     Route: 048
  6. CLOZAPINE [Suspect]
     Active Substance: CLOZAPINE
     Dosage: 400 MILLIGRAM, QD (INCREASED TO 400 MG/DAY AT DISCHARGE TWO DIVIDED DOSES IN THE MORNING AND EVENING
     Route: 048
     Dates: start: 2018
  7. CLOZAPINE [Suspect]
     Active Substance: CLOZAPINE
     Dosage: 350 MILLIGRAM, QD (GRADUALLY REDUCED)
     Route: 048
     Dates: start: 201903
  8. CLOZAPINE [Suspect]
     Active Substance: CLOZAPINE
     Dosage: 50 MILLIGRAM, QD (50 MG ADMINISTERED IN THE EVENING)
     Route: 048
     Dates: start: 201910
  9. CLOZAPINE [Suspect]
     Active Substance: CLOZAPINE
     Dosage: 100 MILLIGRAM, QD (100 MG IN THE EVENING)
     Route: 048
     Dates: start: 201912
  10. OLANZAPINE [Suspect]
     Active Substance: OLANZAPINE
     Indication: Product used for unknown indication
     Dosage: 30 MILLIGRAM
     Route: 065
  11. ESCITALOPRAM [Suspect]
     Active Substance: ESCITALOPRAM OXALATE
     Indication: Depression
     Dosage: 10 MILLIGRAM
     Route: 065
     Dates: start: 201901
  12. QUETIAPINE [Suspect]
     Active Substance: QUETIAPINE
     Indication: Depression
     Dosage: 100 MILLIGRAM, QD
     Route: 065
     Dates: start: 201912, end: 2020
  13. QUETIAPINE [Suspect]
     Active Substance: QUETIAPINE
     Dosage: UNK (GRADUALLY REDUCED)
     Route: 065
     Dates: start: 202003
  14. CLONAZEPAM [Suspect]
     Active Substance: CLONAZEPAM
     Indication: Product used for unknown indication
     Dosage: UNK
     Route: 030
  15. CLONAZEPAM [Suspect]
     Active Substance: CLONAZEPAM
     Dosage: 0.5 MILLIGRAM
     Route: 030
     Dates: start: 2019
  16. RISPERIDONE [Concomitant]
     Active Substance: RISPERIDONE
     Dosage: 50 MILLIGRAM
     Route: 065
     Dates: start: 201403
  17. RISPERIDONE [Concomitant]
     Active Substance: RISPERIDONE
     Dosage: 37.5 MILLIGRAM (37.5 MG AND 2 WEEKS)
     Route: 065
  18. PANTOPRAZOLE [Concomitant]
     Active Substance: PANTOPRAZOLE
     Indication: Gastrointestinal disorder
     Dosage: 40 MILLIGRAM, QD (40 MG IN THE MORNING)
     Route: 065
  19. OXAZEPAM [Concomitant]
     Active Substance: OXAZEPAM
     Indication: Insomnia
     Dosage: 10 MILLIGRAM, QD
     Route: 065
     Dates: start: 201711
  20. OXAZEPAM [Concomitant]
     Active Substance: OXAZEPAM
     Indication: Anxiety
  21. PROMETHAZINE [Concomitant]
     Active Substance: PROMETHAZINE HYDROCHLORIDE
     Indication: Insomnia
     Dosage: 50 MILLIGRAM
     Route: 065
     Dates: start: 201802
  22. HALOPERIDOL [Concomitant]
     Active Substance: HALOPERIDOL
     Dosage: 5 MILLIGRAM
     Route: 030
  23. LEVOMEPROMAZINE [Concomitant]
     Active Substance: LEVOMEPROMAZINE
     Dosage: UNK
     Route: 030
  24. PALIPERIDONE [Concomitant]
     Active Substance: PALIPERIDONE
     Dosage: 150 MILLIGRAM, MONTHLY (ONCE MONTHLY INTO THE DELTOID MUSCLE)
     Route: 030
  25. MIANSERIN [Concomitant]
     Active Substance: MIANSERIN
     Indication: Depression
     Dosage: 60 MILLIGRAM
     Route: 065
  26. VORTIOXETINE [Concomitant]
     Active Substance: VORTIOXETINE
     Dosage: 5 MILLIGRAM
     Route: 065
     Dates: start: 201905
  27. VORTIOXETINE [Concomitant]
     Active Substance: VORTIOXETINE
     Dosage: 20 MILLIGRAM
     Route: 065
     Dates: start: 201907
  28. VORTIOXETINE [Concomitant]
     Active Substance: VORTIOXETINE
     Dosage: 10 MILLIGRAM, QD (10 MG IN THE MORNING)
     Route: 065
     Dates: start: 202107
  29. BROMAZEPAM [Concomitant]
     Active Substance: BROMAZEPAM
     Indication: Anxiety
     Dosage: UNK
     Route: 065
  30. ZOLPIDEM [Concomitant]
     Active Substance: ZOLPIDEM TARTRATE
     Dosage: UNK
     Route: 065
  31. PALIPERIDONE PALMITATE [Concomitant]
     Active Substance: PALIPERIDONE PALMITATE
     Indication: Schizophrenia
     Dosage: UNK (3-MONTH DOSAGE FORM)
     Route: 065

REACTIONS (9)
  - Psychotic symptom [Unknown]
  - Fatigue [Unknown]
  - Tachycardia [Unknown]
  - Decreased interest [Unknown]
  - Apathy [Unknown]
  - Condition aggravated [Unknown]
  - Weight increased [Unknown]
  - Drug ineffective [Unknown]
  - Sedation [Unknown]

NARRATIVE: CASE EVENT DATE: 20180201
